FAERS Safety Report 25227260 (Version 1)
Quarter: 2025Q2

REPORT INFORMATION
  Report Type: Spontaneous
  Country: US (occurrence: US)
  Receive Date: 20250422
  Receipt Date: 20250422
  Transmission Date: 20250716
  Serious: Yes (Hospitalization, Other)
  Sender: MERCK SHARP & DOHME LLC
  Company Number: US-009507513-2276772

PATIENT
  Age: 85 Year
  Sex: Male

DRUGS (1)
  1. KEYTRUDA [Suspect]
     Active Substance: PEMBROLIZUMAB
     Indication: Malignant melanoma
     Route: 050
     Dates: start: 202410, end: 20250328

REACTIONS (7)
  - Internal hernia [Unknown]
  - Post procedural haemorrhage [Unknown]
  - Abdominal pain upper [Unknown]
  - Vomiting [Unknown]
  - Malignant neoplasm progression [Unknown]
  - Spleen disorder [Unknown]
  - Unevaluable event [Unknown]

NARRATIVE: CASE EVENT DATE: 20250101
